FAERS Safety Report 18469154 (Version 1)
Quarter: 2020Q4

REPORT INFORMATION
  Report Type: Spontaneous
  Country: US (occurrence: US)
  Receive Date: 20201105
  Receipt Date: 20201105
  Transmission Date: 20210114
  Serious: Yes (Other)
  Sender: FDA-Public Use
  Company Number: US-PFIZER INC-2020424270

PATIENT
  Age: 31 Year
  Sex: Female

DRUGS (3)
  1. TERBUTALINE [Concomitant]
     Active Substance: TERBUTALINE
     Indication: TOCOLYSIS
     Dosage: UNK
     Route: 058
  2. MAGNESIUM SULFATE. [Suspect]
     Active Substance: MAGNESIUM SULFATE
     Indication: TOCOLYSIS
     Dosage: UNK
     Route: 042
  3. MAGNESIUM SULFATE. [Suspect]
     Active Substance: MAGNESIUM SULFATE
     Indication: PREMATURE LABOUR
     Dosage: UNK
     Route: 051

REACTIONS (4)
  - Hyperkalaemia [Recovered/Resolved]
  - Hypermagnesaemia [Recovered/Resolved]
  - Product use in unapproved indication [Unknown]
  - Off label use [Unknown]
